FAERS Safety Report 19550423 (Version 1)
Quarter: 2021Q3

REPORT INFORMATION
  Report Type: Report from Study
  Country: BR (occurrence: BR)
  Receive Date: 20210714
  Receipt Date: 20210714
  Transmission Date: 20211014
  Serious: Yes (Death, Other)
  Sender: FDA-Public Use
  Company Number: BR-B.I. PHARMACEUTICALS,INC./RIDGEFIELD-2021-BI-115028

PATIENT
  Age: 72 Year
  Sex: Female
  Weight: 62 kg

DRUGS (1)
  1. OFEV [Suspect]
     Active Substance: NINTEDANIB
     Indication: IDIOPATHIC PULMONARY FIBROSIS
     Dates: start: 20210707, end: 20210711

REACTIONS (5)
  - Idiopathic pulmonary fibrosis [Fatal]
  - Cardio-respiratory arrest [Recovered/Resolved]
  - Acute respiratory failure [Fatal]
  - Pneumonia [Fatal]
  - Product administration error [Unknown]

NARRATIVE: CASE EVENT DATE: 20210711
